FAERS Safety Report 14814031 (Version 2)
Quarter: 2018Q2

REPORT INFORMATION
  Report Type: Spontaneous
  Country: HR (occurrence: HR)
  Receive Date: 20180426
  Receipt Date: 20180504
  Transmission Date: 20180711
  Serious: Yes (Hospitalization, Other)
  Sender: FDA-Public Use
  Company Number: HR-AMGEN-HRVSP2018054712

PATIENT
  Age: 59 Year
  Sex: Female

DRUGS (16)
  1. ARANESP [Suspect]
     Active Substance: DARBEPOETIN ALFA
     Dosage: 30 MCG, QWK
     Route: 065
     Dates: start: 201601
  2. VITAMIN B12 [Concomitant]
     Active Substance: CYANOCOBALAMIN
     Dosage: UNK
  3. ARANESP [Suspect]
     Active Substance: DARBEPOETIN ALFA
     Dosage: 20 MCG, QWK
     Route: 065
     Dates: start: 201703
  4. CARBAMAZEPINE. [Concomitant]
     Active Substance: CARBAMAZEPINE
     Dosage: UNK
  5. VITAMIN B1 [Concomitant]
     Active Substance: THIAMINE HYDROCHLORIDE
     Dosage: UNK
  6. ARANESP [Suspect]
     Active Substance: DARBEPOETIN ALFA
     Dosage: 10 MCG, QWK
     Route: 065
     Dates: start: 201801
  7. ARANESP [Suspect]
     Active Substance: DARBEPOETIN ALFA
     Dosage: 40 MCG, QWK
     Route: 065
     Dates: start: 201606
  8. ARANESP [Suspect]
     Active Substance: DARBEPOETIN ALFA
     Dosage: 20 MCG, QWK
     Route: 065
     Dates: start: 201706
  9. PARICALCITOL. [Concomitant]
     Active Substance: PARICALCITOL
     Dosage: UNK
     Dates: start: 2013
  10. SACCHARATED IRON OXIDE [Concomitant]
     Active Substance: IRON SUCROSE
     Dosage: 50 MG, QWK
     Dates: start: 2004, end: 201802
  11. VITAMIN C [Concomitant]
     Active Substance: ASCORBIC ACID
     Dosage: UNK
  12. MARCUMAR [Concomitant]
     Active Substance: PHENPROCOUMON
     Dosage: UNK
  13. MIMPARA [Suspect]
     Active Substance: CINACALCET HYDROCHLORIDE
     Indication: PRODUCT USED FOR UNKNOWN INDICATION
     Dosage: UNK
     Route: 065
     Dates: start: 2015
  14. VITAMIN B6 [Concomitant]
     Active Substance: PYRIDOXINE HYDROCHLORIDE
     Dosage: UNK
  15. ARANESP [Suspect]
     Active Substance: DARBEPOETIN ALFA
     Indication: NEPHROGENIC ANAEMIA
     Dosage: 30 MCG, QWK
     Route: 065
     Dates: start: 201505
  16. ARANESP [Suspect]
     Active Substance: DARBEPOETIN ALFA
     Dosage: 30 MCG, QWK
     Route: 065
     Dates: start: 201802

REACTIONS (1)
  - Pancytopenia [Unknown]
